FAERS Safety Report 14688579 (Version 1)
Quarter: 2018Q1

REPORT INFORMATION
  Report Type: Spontaneous
  Country: FR (occurrence: FR)
  Receive Date: 20180328
  Receipt Date: 20180328
  Transmission Date: 20180509
  Serious: Yes (Life-Threatening, Congenital Anomaly)
  Sender: FDA-Public Use
  Company Number: FR-FERRINGPH-2018FE01361

PATIENT

DRUGS (5)
  1. MENOPUR [Suspect]
     Active Substance: FOLLITROPIN\LUTEINIZING HORMONE
     Indication: IN VITRO FERTILISATION
     Dosage: 150 IU
     Route: 064
     Dates: start: 20130530, end: 20130607
  2. UTROGESTAN [Suspect]
     Active Substance: PROGESTERONE
     Indication: IN VITRO FERTILISATION
     Dosage: 600 MG
     Route: 064
     Dates: start: 201306, end: 201308
  3. OVITRELLE [Suspect]
     Active Substance: CHORIOGONADOTROPIN ALFA
     Indication: IN VITRO FERTILISATION
     Dosage: 250 IU, IN TOTAL
     Route: 064
     Dates: start: 20130608
  4. OLIGOBS GROSSESSE [Suspect]
     Active Substance: MINERALS\VITAMINS
     Dosage: UNK
  5. DECAPEPTYL (ACETATE) [Suspect]
     Active Substance: TRIPTORELIN ACETATE
     Indication: IN VITRO FERTILISATION
     Dosage: 1 DF, IN TOTAL
     Route: 064
     Dates: start: 20130513

REACTIONS (3)
  - Ureterocele [Recovered/Resolved with Sequelae]
  - Hydronephrosis [Recovered/Resolved with Sequelae]
  - Renal dysplasia [Recovered/Resolved with Sequelae]

NARRATIVE: CASE EVENT DATE: 20131030
